FAERS Safety Report 8289943-9 (Version None)
Quarter: 2012Q2

REPORT INFORMATION
  Report Type: 
  Country: None (occurrence: None)
  Receive Date: 20120417
  Receipt Date: 20120402
  Transmission Date: 20120825
  Serious: Yes (Hospitalization)
  Sender: FDA-Public Use
  Company Number: US-ROCHE-1055773

PATIENT
  Sex: Female
  Weight: 57.2 kg

DRUGS (5)
  1. VISMODEGIB [Suspect]
     Indication: PANCREATIC CARCINOMA METASTATIC
     Dates: start: 20120320
  2. PACLITAXEL [Suspect]
     Indication: PANCREATIC CARCINOMA METASTATIC
     Dates: start: 20120222
  3. LOVENOX [Concomitant]
  4. KEFLEX [Concomitant]
  5. GEMCITABINE HYDROCHLORIDE [Suspect]
     Indication: PANCREATIC CARCINOMA METASTATIC
     Dates: start: 20120222

REACTIONS (1)
  - CELLULITIS [None]
